APPROVED DRUG PRODUCT: CORTROSYN
Active Ingredient: COSYNTROPIN
Strength: 0.25MG/VIAL
Dosage Form/Route: INJECTABLE;INJECTION
Application: N016750 | Product #001 | TE Code: AP
Applicant: AMPHASTAR PHARMACEUTICALS INC
Approved: Approved Prior to Jan 1, 1982 | RLD: Yes | RS: Yes | Type: RX